FAERS Safety Report 13831486 (Version 1)
Quarter: 2017Q3

REPORT INFORMATION
  Report Type: Spontaneous
  Country: GB (occurrence: GB)
  Receive Date: 20170803
  Receipt Date: 20170803
  Transmission Date: 20171127
  Serious: Yes (Other)
  Sender: FDA-Public Use
  Company Number: GB-TEVA-790756ACC

PATIENT
  Sex: Female

DRUGS (1)
  1. BUMETANIDE. [Suspect]
     Active Substance: BUMETANIDE
     Route: 065
     Dates: start: 201704

REACTIONS (5)
  - Arthralgia [Unknown]
  - Incorrect dose administered [Unknown]
  - Deafness [Recovered/Resolved]
  - Muscle spasms [Unknown]
  - Arthritis [Unknown]
